FAERS Safety Report 9255245 (Version 1)
Quarter: 2013Q2

REPORT INFORMATION
  Report Type: Report from Study
  Country: GB (occurrence: GB)
  Receive Date: 20130425
  Receipt Date: 20130425
  Transmission Date: 20140414
  Serious: Yes (Hospitalization, Other)
  Sender: FDA-Public Use
  Company Number: GB-JNJFOC-20130411192

PATIENT
  Age: 68 Year
  Sex: Male
  Weight: 123 kg

DRUGS (17)
  1. USTEKINUMAB [Suspect]
     Indication: PSORIASIS
     Route: 058
     Dates: start: 20110316
  2. BUMETANIDE [Concomitant]
     Dates: start: 20080301
  3. WARFARIN [Concomitant]
     Dates: start: 20080301
  4. CARVEDILOL [Concomitant]
     Dates: start: 20080501
  5. SPIRONOLACTONE [Concomitant]
     Dates: start: 20080501
  6. METFORMIN [Concomitant]
     Dates: start: 20080701
  7. HUMALOG [Concomitant]
     Dates: start: 20010401
  8. RAMIPRIL [Concomitant]
     Dates: start: 20010401
  9. HYDROXYZINE [Concomitant]
     Dates: start: 20100201
  10. VESICARE [Concomitant]
     Dates: start: 20100101
  11. THIAMINE [Concomitant]
     Dates: start: 20100701
  12. CO-DYDRAMOL [Concomitant]
     Dates: start: 20110301
  13. EPLERENONE [Concomitant]
     Dates: start: 20110428
  14. TRAMADOL [Concomitant]
     Dates: start: 20110614
  15. MACROGOL [Concomitant]
     Dates: start: 20110708
  16. GABAPENTIN [Concomitant]
     Dates: start: 20120606
  17. DOMPERIDONE [Concomitant]
     Dates: start: 20120626

REACTIONS (3)
  - Urosepsis [Recovered/Resolved]
  - Cellulitis [Recovered/Resolved]
  - Prostatomegaly [Unknown]
